FAERS Safety Report 6131578-8 (Version None)
Quarter: 2009Q1

REPORT INFORMATION
  Report Type: 
  Country: None (occurrence: None)
  Receive Date: 20090325
  Receipt Date: 20081216
  Transmission Date: 20090719
  Serious: Yes (Hospitalization)
  Sender: FDA-Public Use
  Company Number: US-BRISTOL-MYERS SQUIBB COMPANY-14388110

PATIENT
  Age: 52 Year
  Sex: Male
  Weight: 88 kg

DRUGS (6)
  1. ERBITUX [Suspect]
     Indication: PHARYNGEAL CANCER STAGE UNSPECIFIED
     Dosage: DURING WEEK OF 20-OCT-2008
     Route: 042
     Dates: start: 20081016
  2. BENADRYL [Concomitant]
     Indication: PREMEDICATION
  3. SODIUM CHLORIDE [Concomitant]
     Route: 042
     Dates: start: 20081016
  4. DEXAMETHASONE TAB [Concomitant]
     Route: 042
     Dates: start: 20081016
  5. ZANTAC [Concomitant]
     Route: 042
     Dates: start: 20081016
  6. DIPHENHYDRAMINE HCL [Concomitant]
     Route: 042
     Dates: start: 20081016

REACTIONS (5)
  - BLOOD PRESSURE DIASTOLIC DECREASED [None]
  - FEELING HOT [None]
  - OXYGEN SATURATION DECREASED [None]
  - PHARYNGEAL OEDEMA [None]
  - RASH PRURITIC [None]
